FAERS Safety Report 14312360 (Version 1)
Quarter: 2017Q4

REPORT INFORMATION
  Report Type: Spontaneous
  Country: DE (occurrence: DE)
  Receive Date: 20171221
  Receipt Date: 20171221
  Transmission Date: 20180321
  Serious: Yes (Hospitalization)
  Sender: FDA-Public Use
  Company Number: PHHY2017DE190032

PATIENT
  Age: 59 Year
  Sex: Female
  Weight: 66 kg

DRUGS (9)
  1. PERJETA [Suspect]
     Active Substance: PERTUZUMAB
     Indication: BREAST CANCER
     Dosage: 420 MG, QW (12 CYCLES)
     Route: 042
     Dates: start: 201705, end: 201708
  2. FENISTIL [Concomitant]
     Active Substance: DIMETHINDENE
     Indication: PREMEDICATION
     Dosage: 1 DF, UNK
     Route: 065
     Dates: start: 201704, end: 201708
  3. ONDANSETRON [Concomitant]
     Active Substance: ONDANSETRON
     Indication: PREMEDICATION
     Route: 065
     Dates: start: 201704, end: 201708
  4. PACLITAXEL. [Suspect]
     Active Substance: PACLITAXEL
     Indication: BREAST CANCER
     Dosage: 80 MG/KG, QW (12 CYCLES)
     Route: 042
     Dates: start: 201705, end: 201708
  5. HERCEPTIN [Suspect]
     Active Substance: TRASTUZUMAB
     Dosage: 6 MG/KG, QW (12 CYCLIC)
     Route: 042
     Dates: start: 201708
  6. DEXAMETHASON [Concomitant]
     Active Substance: DEXAMETHASONE
     Indication: PREMEDICATION
     Dosage: 8 MG, UNK
     Route: 065
     Dates: start: 201704, end: 201708
  7. HERCEPTIN [Suspect]
     Active Substance: TRASTUZUMAB
     Indication: BREAST CANCER
     Dosage: 6 MG/KG, QW (12 CYCLIC)
     Route: 042
     Dates: start: 201705
  8. FERROSANOL [Concomitant]
     Active Substance: FERROUS GLUCONATE
     Indication: PRODUCT USED FOR UNKNOWN INDICATION
     Route: 065
  9. KALINORM [Concomitant]
     Indication: PRODUCT USED FOR UNKNOWN INDICATION
     Dosage: UNK
     Route: 065

REACTIONS (4)
  - Vomiting [Recovered/Resolved]
  - Diarrhoea [Not Recovered/Not Resolved]
  - Acute kidney injury [Recovering/Resolving]
  - Headache [Recovered/Resolved]

NARRATIVE: CASE EVENT DATE: 201705
